FAERS Safety Report 4591458-6 (Version None)
Quarter: 2005Q1

REPORT INFORMATION
  Report Type: 
  Country: None (occurrence: None)
  Receive Date: 20050223
  Receipt Date: 20050223
  Transmission Date: 20050727
  Serious: Yes (Other)
  Sender: FDA-Public Use
  Company Number: None

PATIENT
  Age: 35 Year
  Sex: Female
  Weight: 53.5244 kg

DRUGS (3)
  1. EFFEXOR [Suspect]
     Indication: ANXIETY
     Dosage: 150MG   ONCE A DAY   ORAL
     Route: 048
     Dates: start: 20031210, end: 20050222
  2. EFFEXOR [Suspect]
     Indication: DEPRESSION
     Dosage: 150MG   ONCE A DAY   ORAL
     Route: 048
     Dates: start: 20031210, end: 20050222
  3. TREATMENT FOR HTN [Concomitant]

REACTIONS (5)
  - DIZZINESS [None]
  - EAR PAIN [None]
  - INFLUENZA LIKE ILLNESS [None]
  - NAUSEA [None]
  - VOMITING [None]
